FAERS Safety Report 4410682-6 (Version None)
Quarter: 2004Q3

REPORT INFORMATION
  Report Type: 
  Country: None (occurrence: None)
  Receive Date: 20040726
  Receipt Date: 20040716
  Transmission Date: 20050211
  Serious: Yes (Hospitalization)
  Sender: FDA-Public Use
  Company Number: 2004043302

PATIENT
  Age: 39 Year
  Sex: Male

DRUGS (1)
  1. AZITHROMYCIN [Suspect]
     Indication: TONSILLITIS
     Dosage: 500 MG (500 MG, 1 IN 1 D), ORAL
     Route: 048
     Dates: start: 20040101, end: 20040101

REACTIONS (5)
  - APHTHOUS STOMATITIS [None]
  - CELLULITIS [None]
  - EXANTHEM [None]
  - PYREXIA [None]
  - STREPTOCOCCAL BACTERAEMIA [None]
